FAERS Safety Report 8430279-0 (Version None)
Quarter: 2012Q2

REPORT INFORMATION
  Report Type: 
  Country: None (occurrence: None)
  Receive Date: 20120606
  Receipt Date: 20120606
  Transmission Date: 20120825
  Serious: Yes (Other)
  Sender: FDA-Public Use
  Company Number: None

PATIENT
  Age: 68 Year
  Sex: Female

DRUGS (1)
  1. NORDITROPIN [Suspect]
     Dosage: 0.2MG DAILY SQ 04/2102
     Route: 058

REACTIONS (4)
  - SOMNOLENCE [None]
  - NAUSEA [None]
  - PAIN [None]
  - HUNGER [None]
